FAERS Safety Report 9163685 (Version 1)
Quarter: 2013Q1

REPORT INFORMATION
  Report Type: Other
  Country: PL (occurrence: PL)
  Receive Date: 20130314
  Receipt Date: 20130314
  Transmission Date: 20140127
  Serious: Yes (Other)
  Sender: FDA-Public Use
  Company Number: PL-WATSON-2013-04234

PATIENT
  Age: 55 Year
  Sex: Female

DRUGS (18)
  1. GABAPENTIN (UNKNOWN) [Suspect]
     Indication: SOFT TISSUE DISORDER
     Dosage: 100 MG, DAILY
     Route: 048
     Dates: start: 20121210
  2. GABAPENTIN (UNKNOWN) [Suspect]
     Dosage: 100 MG, UNK
     Route: 048
     Dates: start: 20121211
  3. GABAPENTIN (UNKNOWN) [Suspect]
     Dosage: 100 MG, TID
     Route: 048
     Dates: start: 20121212
  4. GABAPENTIN (UNKNOWN) [Suspect]
     Dosage: 500 MG, DAILY
     Route: 048
     Dates: start: 20121213
  5. GABAPENTIN (UNKNOWN) [Suspect]
     Dosage: 400 MG, DAILY
     Route: 048
     Dates: start: 20121214
  6. GABAPENTIN (UNKNOWN) [Suspect]
     Dosage: 100 MG, UNK
     Route: 048
     Dates: start: 20121216
  7. SEREVENT [Concomitant]
     Indication: PRODUCT USED FOR UNKNOWN INDICATION
     Dosage: UNK, UNKNOWN
     Route: 065
  8. PULMICORT [Concomitant]
     Indication: PRODUCT USED FOR UNKNOWN INDICATION
     Dosage: UNK, UNKNOWN
     Route: 065
  9. BUDERHIN [Concomitant]
     Indication: PRODUCT USED FOR UNKNOWN INDICATION
     Dosage: UNK, UNKNOWN
     Route: 065
  10. FLONIDAN [Concomitant]
     Indication: PRODUCT USED FOR UNKNOWN INDICATION
     Dosage: UNK, UNKNOWN
     Route: 065
  11. STAVERAN [Concomitant]
     Indication: PRODUCT USED FOR UNKNOWN INDICATION
     Dosage: UNK, UNKNOWN
     Route: 065
  12. CAPTOPRIL [Concomitant]
     Indication: PRODUCT USED FOR UNKNOWN INDICATION
     Dosage: UNK, UNKNOWN
     Route: 065
  13. KALIPOZ [Concomitant]
     Indication: PRODUCT USED FOR UNKNOWN INDICATION
     Dosage: UNK, UNKNOWN
     Route: 065
  14. FUROSEMIDE [Concomitant]
     Indication: PRODUCT USED FOR UNKNOWN INDICATION
     Dosage: UNK, UNKNOWN
     Route: 065
  15. RUTINOSCORBIN [Concomitant]
     Indication: PRODUCT USED FOR UNKNOWN INDICATION
     Dosage: UNK, UNKNOWN
     Route: 065
  16. NITRAZEPAM [Concomitant]
     Indication: PRODUCT USED FOR UNKNOWN INDICATION
     Dosage: UNK, UNKNOWN
     Route: 065
  17. HYDROXYZINE [Concomitant]
     Indication: PRODUCT USED FOR UNKNOWN INDICATION
     Dosage: UNK, UNKNOWN
     Route: 065
  18. OMEPRAZOLE [Concomitant]
     Indication: PRODUCT USED FOR UNKNOWN INDICATION
     Dosage: UNK, UNKNOWN
     Route: 065

REACTIONS (8)
  - Blood pressure increased [Unknown]
  - Heart rate increased [Unknown]
  - Dyspnoea [Unknown]
  - Dizziness [Unknown]
  - Balance disorder [Unknown]
  - Nausea [Unknown]
  - Retching [Unknown]
  - Alopecia [Unknown]
